FAERS Safety Report 11727368 (Version 1)
Quarter: 2015Q4

REPORT INFORMATION
  Report Type: Spontaneous
  Country: US (occurrence: US)
  Receive Date: 20151112
  Receipt Date: 20151112
  Transmission Date: 20160304
  Serious: No
  Sender: FDA-Public Use
  Company Number: US-PFIZER INC-2015370883

PATIENT
  Age: 44 Year
  Sex: Female
  Weight: 62.59 kg

DRUGS (1)
  1. ADVIL [Suspect]
     Active Substance: IBUPROFEN
     Indication: PAIN
     Dosage: 200 MG, TWO TABLETS OCCASIONALLY
     Route: 048
     Dates: start: 20151016

REACTIONS (4)
  - Product difficult to swallow [Not Recovered/Not Resolved]
  - Dysphagia [Not Recovered/Not Resolved]
  - Pharyngeal disorder [Unknown]
  - Foreign body [Unknown]
